FAERS Safety Report 5742717-2 (Version None)
Quarter: 2008Q2

REPORT INFORMATION
  Report Type: 
  Country: None (occurrence: None)
  Receive Date: 20080519
  Receipt Date: 20080516
  Transmission Date: 20081010
  Serious: No
  Sender: FDA-Public Use
  Company Number: B0519640A

PATIENT
  Age: 70 Year
  Sex: Female

DRUGS (3)
  1. ZOVIRAX [Suspect]
     Indication: HERPES ZOSTER
     Dosage: 250MG THREE TIMES PER DAY
     Route: 042
     Dates: start: 20080430
  2. PREDONINE [Concomitant]
     Route: 048
  3. CYANOCOBALAMIN [Concomitant]
     Route: 048

REACTIONS (1)
  - INJECTION SITE INFLAMMATION [None]
